FAERS Safety Report 5944619-5 (Version None)
Quarter: 2008Q4

REPORT INFORMATION
  Report Type: 
  Country: None (occurrence: None)
  Receive Date: 20081107
  Receipt Date: 20081027
  Transmission Date: 20090506
  Serious: Yes (Hospitalization, Other)
  Sender: FDA-Public Use
  Company Number: US-ELI_LILLY_AND_COMPANY-US200810004548

PATIENT
  Sex: Female

DRUGS (19)
  1. FORTEO [Suspect]
     Indication: OSTEOPOROSIS
     Dosage: 20 UG, DAILY (1/D)
     Route: 058
     Dates: start: 20070801
  2. PROZAC [Suspect]
  3. TYLENOL W/ CODEINE NO. 3 [Concomitant]
     Indication: PAIN
     Dosage: UNK, AS NEEDED
  4. LIBRIUM [Concomitant]
     Dosage: 2 TIMES A DAY AS NEEDED
  5. LIBRIUM [Concomitant]
     Dosage: 10 MG, 2/D
  6. DILTIAZEM HCL [Concomitant]
     Indication: BLOOD PRESSURE INCREASED
     Dosage: 180 MG, DAILY (1/D)
  7. SKELAXIN [Concomitant]
     Dosage: 400 MG, UNK
  8. SKELAXIN [Concomitant]
     Dosage: 1/2 TO 1 DOSAGE FORM 3 TIMES A DAY AS NEEDED
  9. ASPIRIN [Concomitant]
     Dosage: 81 MG, DAILY (1/D)
     Dates: end: 20081001
  10. ASPIRIN [Concomitant]
     Dosage: 325 MG, DAILY (1/D)
  11. CALCIUM W/MAGNESIUM [Concomitant]
     Dosage: UNK, 2/D
  12. CALCIUM CARBONATE W/MAGNESIUM [Concomitant]
     Dosage: UNK, 2/D
  13. RAMELTEON [Concomitant]
     Dosage: 8 MG, EACH EVENING
  14. RAMELTEON [Concomitant]
     Dosage: 8 MG, EACH EVENING AS NEEDED
  15. MIRALAX [Concomitant]
     Dosage: 1-2 SCOOPS, DAILY (1/D)
  16. MIRALAX [Concomitant]
     Dosage: 1 -2 UNIT DOSES DAILY (1/D)
  17. VITAMIN D [Concomitant]
     Dosage: 50000 U, MONTHLY (1/M)
  18. VITAMIN D [Concomitant]
     Dosage: 2000 IU, DAILY (1/D)
  19. PERCOCET [Concomitant]
     Indication: PAIN
     Dosage: UNK, AS NEEDED

REACTIONS (16)
  - ACTIVITIES OF DAILY LIVING IMPAIRED [None]
  - ADVERSE DRUG REACTION [None]
  - ANAEMIA POSTOPERATIVE [None]
  - ANKLE FRACTURE [None]
  - BLOOD PRESSURE INCREASED [None]
  - BLOOD UREA DECREASED [None]
  - DYSSTASIA [None]
  - ELECTROCARDIOGRAM ABNORMAL [None]
  - EXTRASYSTOLES [None]
  - FALL [None]
  - LYMPHOCYTE COUNT DECREASED [None]
  - MEMORY IMPAIRMENT [None]
  - MONOCYTE COUNT INCREASED [None]
  - MYOCARDIAL INFARCTION [None]
  - NEUTROPHIL COUNT INCREASED [None]
  - PLATELET COUNT DECREASED [None]
